FAERS Safety Report 8239095-6 (Version None)
Quarter: 2012Q1

REPORT INFORMATION
  Report Type: 
  Country: None (occurrence: None)
  Receive Date: 20120327
  Receipt Date: 20120314
  Transmission Date: 20120608
  Serious: Yes (Hospitalization, Other)
  Sender: FDA-Public Use
  Company Number: US-ELI_LILLY_AND_COMPANY-US201203004924

PATIENT
  Age: 73 Year
  Sex: Female

DRUGS (19)
  1. CATAPRES                                /UNK/ [Concomitant]
  2. CYMBALTA [Suspect]
     Indication: DEPRESSION
     Dosage: 60 MG, QD
  3. ABILIFY [Concomitant]
  4. ASPIRIN [Concomitant]
  5. LEVOTHYROXINE SODIUM [Concomitant]
  6. LABETALOL HCL [Concomitant]
  7. ZYPREXA [Suspect]
     Dosage: 10 MG, QD
  8. LORTAB [Concomitant]
  9. DOCUSATE SODIUM [Concomitant]
  10. IRON [Concomitant]
  11. ZOLOFT [Concomitant]
  12. ARICEPT [Concomitant]
  13. FAMOTIDINE [Concomitant]
  14. CARDIOVASCULAR SYSTEM DRUGS [Concomitant]
  15. AMLODIPINE [Concomitant]
  16. FRAGMIN [Concomitant]
  17. BETOPTIC [Concomitant]
  18. ALBUTEROL SULFATE [Concomitant]
  19. ACETAMINOPHEN [Concomitant]

REACTIONS (6)
  - GANGRENE [None]
  - CONFUSIONAL STATE [None]
  - LEG AMPUTATION [None]
  - HALLUCINATION [None]
  - WOUND [None]
  - ALTERED STATE OF CONSCIOUSNESS [None]
